FAERS Safety Report 10264852 (Version 2)
Quarter: 2014Q2

REPORT INFORMATION
  Report Type: Report from Study
  Country: FR (occurrence: FR)
  Receive Date: 20140627
  Receipt Date: 20140627
  Transmission Date: 20141212
  Serious: Yes (Death, Other)
  Sender: FDA-Public Use
  Company Number: FR-SA-CAMP-1002674

PATIENT
  Age: 67 Year
  Sex: Male

DRUGS (6)
  1. ALEMTUZUMAB [Suspect]
     Indication: CHRONIC LYMPHOCYTIC LEUKAEMIA
     Dosage: 30 MG, 3X/W
     Route: 059
     Dates: start: 2012, end: 20120817
  2. ALEMTUZUMAB [Suspect]
     Indication: CHRONIC LYMPHOCYTIC LEUKAEMIA
     Dosage: UNK
     Route: 065
     Dates: start: 20120921, end: 20121112
  3. DEXAMETHASONE [Concomitant]
     Indication: THERAPEUTIC PROCEDURE
     Dosage: 40 MG, 1X/W
     Route: 065
     Dates: start: 201207
  4. BACTRIM [Concomitant]
     Indication: ANTIFUNGAL PROPHYLAXIS
     Dosage: 1 DF, Q3W
     Route: 065
     Dates: start: 201207
  5. VALACICLOVIR [Concomitant]
     Indication: ANTIVIRAL PROPHYLAXIS
     Dosage: 500 MG, BID
     Route: 065
     Dates: start: 201207
  6. PHENOXYMETHYLPENICILLIN [Concomitant]
     Indication: INFECTION PROPHYLAXIS
     Dosage: 1000000 U, BID DOSE:1000000 UNIT(S)
     Route: 065
     Dates: start: 201207

REACTIONS (4)
  - Death [Fatal]
  - Septic shock [Unknown]
  - Pneumonia [Unknown]
  - Pyrexia [Unknown]
